FAERS Safety Report 5144379-4 (Version None)
Quarter: 2006Q4

REPORT INFORMATION
  Report Type: 
  Country: None (occurrence: None)
  Receive Date: 20061106
  Receipt Date: 20061025
  Transmission Date: 20070319
  Serious: Yes (Hospitalization)
  Sender: FDA-Public Use
  Company Number: AU-BRISTOL-MYERS SQUIBB COMPANY-13556600

PATIENT
  Sex: Male

DRUGS (3)
  1. ATAZANAVIR [Suspect]
     Indication: HIV INFECTION
     Dosage: DOSED 06-JUL-2006 1 DAY, THEN STOPPED.
     Route: 048
     Dates: start: 20060101, end: 20061005
  2. TRUVADA [Suspect]
     Indication: HIV INFECTION
     Dosage: DOSED 06-JUL-2006, FOR 1 DAY THEN STOPPED.
     Route: 048
     Dates: start: 20060101, end: 20061001
  3. VALTREX [Concomitant]
     Indication: HERPES SIMPLEX

REACTIONS (2)
  - HERPES SIMPLEX [None]
  - PAIN [None]
